FAERS Safety Report 23265756 (Version 1)
Quarter: 2023Q4

REPORT INFORMATION
  Report Type: Spontaneous
  Country: SK (occurrence: SK)
  Receive Date: 20231206
  Receipt Date: 20231206
  Transmission Date: 20240110
  Serious: Yes (Other)
  Sender: FDA-Public Use
  Company Number: SK-PFIZER INC-PV202300192476

PATIENT
  Age: 68 Year
  Sex: Male

DRUGS (7)
  1. AZTREONAM [Suspect]
     Active Substance: AZTREONAM
     Indication: Septic shock
  2. COLISTIN SULFATE [Suspect]
     Active Substance: COLISTIN SULFATE
     Indication: Septic shock
     Dates: start: 202309
  3. SULFAMETHOXAZOLE\TRIMETHOPRIM [Suspect]
     Active Substance: SULFAMETHOXAZOLE\TRIMETHOPRIM
     Indication: Product used for unknown indication
  4. MEROPENEM [Suspect]
     Active Substance: MEROPENEM
     Indication: Septic shock
     Dates: start: 202309
  5. AVIBACTAM SODIUM\CEFTAZIDIME [Suspect]
     Active Substance: AVIBACTAM SODIUM\CEFTAZIDIME
     Indication: Septic shock
  6. LINEZOLID [Suspect]
     Active Substance: LINEZOLID
     Indication: Septic shock
  7. CIPROFLOXACIN [Concomitant]
     Active Substance: CIPROFLOXACIN
     Indication: Prophylaxis

REACTIONS (3)
  - Aortic valve disease [Unknown]
  - Procalcitonin increased [Unknown]
  - C-reactive protein increased [Unknown]
